FAERS Safety Report 8462588-3 (Version None)
Quarter: 2012Q2

REPORT INFORMATION
  Report Type: 
  Country: None (occurrence: None)
  Receive Date: 20120620
  Receipt Date: 20120620
  Transmission Date: 20120825
  Serious: Yes (Other)
  Sender: FDA-Public Use
  Company Number: None

PATIENT
  Sex: Female
  Weight: 63.6 kg

DRUGS (6)
  1. CYMBALTA [Concomitant]
  2. ZOLPIDEM [Suspect]
     Indication: INSOMNIA
     Dosage: ZOLPIDEM 10 MG NIGHTLY PO
     Route: 048
     Dates: start: 20120410, end: 20120411
  3. HYDROMORPHONE HCL [Concomitant]
  4. ZOLPIDEM [Concomitant]
  5. OXYCODONE HCL AND ACETAMINOPHEN [Concomitant]
  6. DIAZEPAM [Concomitant]

REACTIONS (4)
  - PRODUCT QUALITY ISSUE [None]
  - NIGHTMARE [None]
  - INSOMNIA [None]
  - PRODUCT SUBSTITUTION ISSUE [None]
